FAERS Safety Report 4729643-2 (Version None)
Quarter: 2005Q3

REPORT INFORMATION
  Report Type: 
  Country: None (occurrence: None)
  Receive Date: 20050801
  Receipt Date: 20050623
  Transmission Date: 20060218
  Serious: Yes (Death, Hospitalization, Other)
  Sender: FDA-Public Use
  Company Number: US-MERCK-0506USA03410

PATIENT
  Age: 71 Year
  Sex: Female
  Weight: 95 kg

DRUGS (8)
  1. LASIX [Concomitant]
     Route: 065
     Dates: start: 20020110, end: 20020124
  2. LASIX [Concomitant]
     Route: 065
  3. VASOTEC RPD [Concomitant]
     Route: 065
     Dates: end: 20020124
  4. TOPROL-XL [Concomitant]
     Route: 065
  5. VIOXX [Suspect]
     Indication: ARTHRALGIA
     Route: 048
     Dates: start: 20020101, end: 20030601
  6. TYLENOL W/ CODEINE NO. 3 [Concomitant]
     Route: 065
  7. METOLAZONE [Concomitant]
     Route: 065
  8. ALDACTONE [Concomitant]
     Route: 065

REACTIONS (13)
  - ATRIAL FIBRILLATION [None]
  - BLISTER [None]
  - CARDIAC FAILURE CONGESTIVE [None]
  - CELLULITIS [None]
  - CEREBRAL INFARCTION [None]
  - CEREBROVASCULAR ACCIDENT [None]
  - DEEP VEIN THROMBOSIS [None]
  - MYOCARDIAL INFARCTION [None]
  - PAIN IN EXTREMITY [None]
  - RENAL FAILURE [None]
  - SINUSITIS [None]
  - URINARY TRACT INFECTION [None]
  - VENOUS INSUFFICIENCY [None]
